FAERS Safety Report 12963708 (Version 2)
Quarter: 2017Q1

REPORT INFORMATION
  Report Type: Spontaneous
  Country: US (occurrence: US)
  Receive Date: 20161122
  Receipt Date: 20170330
  Transmission Date: 20170428
  Serious: Yes (Death, Hospitalization, Other)
  Sender: FDA-Public Use
  Company Number: US-BRISTOL-MYERS SQUIBB COMPANY-BMS-2016-097553

PATIENT
  Age: 46 Year
  Sex: Female

DRUGS (1)
  1. YERVOY [Suspect]
     Active Substance: IPILIMUMAB
     Indication: MALIGNANT MELANOMA
     Dosage: 10 MG/KG, Q3WK
     Route: 042
     Dates: start: 20160610, end: 20160812

REACTIONS (9)
  - Decreased appetite [Unknown]
  - Insomnia [Unknown]
  - Wound secretion [Unknown]
  - Sepsis [Unknown]
  - Clostridium test positive [Unknown]
  - Death [Fatal]
  - Oral pain [Unknown]
  - Pneumonia [Unknown]
  - Cellulitis [Unknown]

NARRATIVE: CASE EVENT DATE: 20161007
